FAERS Safety Report 16565827 (Version 1)
Quarter: 2019Q3

REPORT INFORMATION
  Report Type: Spontaneous
  Country: JP (occurrence: JP)
  Receive Date: 20190712
  Receipt Date: 20190712
  Transmission Date: 20191004
  Serious: Yes (Other)
  Sender: FDA-Public Use
  Company Number: JP-PFIZER INC-2019297029

PATIENT
  Age: 41 Year
  Sex: Male

DRUGS (5)
  1. CONTOMIN [CHLORPROMAZINE HYDROCHLORIDE] [Concomitant]
  2. GABAPEN [Concomitant]
     Active Substance: GABAPENTIN
  3. FLUNITRAZEPAM [Concomitant]
     Active Substance: FLUNITRAZEPAM
  4. EFFEXOR [Suspect]
     Active Substance: VENLAFAXINE HYDROCHLORIDE
     Indication: DEPRESSION
     Dosage: 225 MG, DAILY
     Dates: start: 20190406, end: 20190518
  5. LOXOPROFEN [Concomitant]
     Active Substance: LOXOPROFEN

REACTIONS (1)
  - Loss of consciousness [Not Recovered/Not Resolved]

NARRATIVE: CASE EVENT DATE: 20190420
